FAERS Safety Report 11189345 (Version 1)
Quarter: 2015Q2

REPORT INFORMATION
  Report Type: Spontaneous
  Country: FR (occurrence: FR)
  Receive Date: 20150615
  Receipt Date: 20150615
  Transmission Date: 20150821
  Serious: Yes (Hospitalization, Other)
  Sender: FDA-Public Use
  Company Number: FR-AMGEN-FRASP2015041743

PATIENT
  Age: 81 Year
  Sex: Male

DRUGS (4)
  1. EXFORGE [Suspect]
     Active Substance: AMLODIPINE BESYLATE\VALSARTAN
     Indication: HYPERTENSION
     Dosage: UNK
     Route: 048
  2. ELIGARD [Concomitant]
     Active Substance: LEUPROLIDE ACETATE
     Indication: NEOPLASM PROSTATE
     Dosage: 1 INJECTION, Q3MO
  3. HYZAAR [Concomitant]
     Active Substance: HYDROCHLOROTHIAZIDE\LOSARTAN POTASSIUM
  4. XGEVA [Suspect]
     Active Substance: DENOSUMAB
     Indication: PROSTATE CANCER METASTATIC
     Dosage: 120 MG, QMO
     Route: 058
     Dates: start: 201307

REACTIONS (3)
  - Heavy chain disease [Unknown]
  - Hypertension [Unknown]
  - Renal function test abnormal [Unknown]

NARRATIVE: CASE EVENT DATE: 201503
